FAERS Safety Report 5821221-7 (Version None)
Quarter: 2008Q3

REPORT INFORMATION
  Report Type: 
  Country: None (occurrence: None)
  Receive Date: 20080723
  Receipt Date: 20080716
  Transmission Date: 20090109
  Serious: No
  Sender: FDA-Public Use
  Company Number: APP200800679

PATIENT
  Age: 51 Year
  Weight: 112.4921 kg

DRUGS (3)
  1. HEPARIN SODIUM INJECTION [Suspect]
     Indication: ARTERIAL THERAPEUTIC PROCEDURE
     Dosage: SEE IMAGE
     Route: 042
     Dates: start: 20080527, end: 20080527
  2. HEPARIN SODIUM INJECTION [Suspect]
     Indication: ARTERIAL THERAPEUTIC PROCEDURE
     Dosage: SEE IMAGE
     Route: 042
     Dates: start: 20080527, end: 20080527
  3. HEPARIN SODIUM INJECTION [Suspect]
     Indication: ARTERIAL THERAPEUTIC PROCEDURE
     Dosage: SEE IMAGE
     Route: 042
     Dates: start: 20080527, end: 20080527

REACTIONS (1)
  - DRUG INEFFECTIVE [None]
